FAERS Safety Report 5573277-7 (Version None)
Quarter: 2007Q4

REPORT INFORMATION
  Report Type: 
  Country: None (occurrence: None)
  Receive Date: 20071224
  Receipt Date: 20071217
  Transmission Date: 20080405
  Serious: Yes (Hospitalization)
  Sender: FDA-Public Use
  Company Number: PHNU2007DE02245

PATIENT
  Sex: Female

DRUGS (10)
  1. LEPONEX [Suspect]
     Indication: SCHIZOPHRENIA
     Dosage: UP TO 400 MG/DAY
     Route: 048
     Dates: end: 20070509
  2. LEPONEX [Suspect]
     Dosage: 100 MG/DAY
     Route: 048
     Dates: start: 20070510
  3. FLUANXOL ^FISONS^ [Suspect]
     Dosage: 40 MG EVERY 2 WEEKS
     Route: 030
     Dates: start: 20070401, end: 20070503
  4. FLUANXOL [Suspect]
     Dosage: 10 MG/DAY
     Route: 048
     Dates: start: 20070401, end: 20070509
  5. FLUANXOL [Suspect]
     Dosage: 4 MG/DAY
     Route: 048
     Dates: start: 20070510
  6. GASTROZEPIN [Concomitant]
     Dosage: 100 MG/DAY
     Route: 048
  7. L-THYROXIN [Concomitant]
     Dosage: 50 A?G/DAY
     Route: 048
  8. METFORMIN HCL [Concomitant]
     Dosage: 2000 MG/DAY
     Route: 048
  9. DISALUNIL [Concomitant]
     Dosage: 12.5 MG/DAY
     Route: 048
  10. RAMIPRIL [Concomitant]
     Dosage: 5 MG/DAY
     Route: 048

REACTIONS (5)
  - BALANCE DISORDER [None]
  - FALL [None]
  - GAIT DISTURBANCE [None]
  - PLEUROTHOTONUS [None]
  - POSTURE ABNORMAL [None]
